FAERS Safety Report 7205285-4 (Version None)
Quarter: 2010Q4

REPORT INFORMATION
  Report Type: 
  Country: None (occurrence: None)
  Receive Date: 20101231
  Receipt Date: 20101221
  Transmission Date: 20110411
  Serious: No
  Sender: FDA-Public Use
  Company Number: US-BIOGENIDEC-2010BI044442

PATIENT
  Sex: Female

DRUGS (4)
  1. AVONEX [Suspect]
     Indication: MULTIPLE SCLEROSIS
     Route: 030
     Dates: start: 20080801, end: 20100201
  2. AVONEX [Suspect]
     Route: 030
     Dates: start: 20101217
  3. ELAVIL [Concomitant]
     Indication: BACK PAIN
     Dates: start: 19950101
  4. ELAVIL [Concomitant]
     Indication: PAIN IN EXTREMITY
     Dates: start: 19950101

REACTIONS (7)
  - ASTHENIA [None]
  - BACK PAIN [None]
  - FALL [None]
  - INFLUENZA LIKE ILLNESS [None]
  - MUSCLE SPASMS [None]
  - MUSCULAR WEAKNESS [None]
  - PAIN IN EXTREMITY [None]
